FAERS Safety Report 7406373-X (Version None)
Quarter: 2011Q2

REPORT INFORMATION
  Report Type: 
  Country: None (occurrence: None)
  Receive Date: 20110405
  Receipt Date: 20110405
  Transmission Date: 20111010
  Serious: Yes (Death)
  Sender: FDA-Public Use
  Company Number: None

PATIENT
  Sex: Male

DRUGS (2)
  1. MELLARIL [Suspect]
     Indication: SCHIZOPHRENIA
     Dosage: 100MG Q AM PO
     Route: 048
  2. MELLARIL [Suspect]
     Indication: SCHIZOPHRENIA
     Dosage: 200MG Q PM PO
     Route: 048

REACTIONS (1)
  - ARTERIOSCLEROSIS [None]
